FAERS Safety Report 16153541 (Version 1)
Quarter: 2019Q2

REPORT INFORMATION
  Report Type: Spontaneous
  Country: US (occurrence: US)
  Receive Date: 20190403
  Receipt Date: 20190403
  Transmission Date: 20190711
  Serious: No
  Sender: FDA-Public Use
  Company Number: US-CIPLA LTD.-2018US23858

PATIENT

DRUGS (6)
  1. ANORO ELLIPTA [Concomitant]
     Active Substance: UMECLIDINIUM BROMIDE\VILANTEROL TRIFENATATE
     Indication: DYSPNOEA
     Dosage: UNK, QD, 62.5MCG/25MCG, PUFFER
     Route: 065
     Dates: start: 20181130
  2. ANORO ELLIPTA [Concomitant]
     Active Substance: UMECLIDINIUM BROMIDE\VILANTEROL TRIFENATATE
     Indication: OROPHARYNGEAL DISCOMFORT
  3. BUDESONIDE. [Suspect]
     Active Substance: BUDESONIDE
     Indication: DYSPNOEA
     Dosage: UNK, 0.5 MG/2 ML, BID
     Route: 048
  4. ANORO ELLIPTA [Concomitant]
     Active Substance: UMECLIDINIUM BROMIDE\VILANTEROL TRIFENATATE
     Indication: LUNG DISORDER
  5. BUDESONIDE. [Suspect]
     Active Substance: BUDESONIDE
     Indication: LUNG DISORDER
     Dosage: UNK, 0.5 MG/2 ML, QD
     Route: 048
     Dates: start: 20180918
  6. BUDESONIDE. [Suspect]
     Active Substance: BUDESONIDE
     Indication: OROPHARYNGEAL DISCOMFORT

REACTIONS (2)
  - Intentional product use issue [Unknown]
  - Dental caries [Not Recovered/Not Resolved]
